FAERS Safety Report 11924537 (Version 1)
Quarter: 2016Q1

REPORT INFORMATION
  Report Type: Report from Study
  Country: FR (occurrence: FR)
  Receive Date: 20160118
  Receipt Date: 20160118
  Transmission Date: 20160526
  Serious: Yes (Life-Threatening, Hospitalization)
  Sender: FDA-Public Use
  Company Number: FR-GUERBET LLC-1046576

PATIENT
  Age: 44 Year
  Sex: Female

DRUGS (1)
  1. HEXABRIX [Suspect]
     Active Substance: IOXAGLATE MEGLUMINE\IOXAGLATE SODIUM
     Indication: X-RAY LIMB
     Route: 014
     Dates: start: 20160108, end: 20160108

REACTIONS (3)
  - Hypothermia [Recovering/Resolving]
  - Tachycardia [Recovering/Resolving]
  - Angioedema [Recovering/Resolving]

NARRATIVE: CASE EVENT DATE: 20160108
